FAERS Safety Report 22259732 (Version 1)
Quarter: 2023Q2

REPORT INFORMATION
  Report Type: Spontaneous
  Country: US (occurrence: US)
  Receive Date: 20230427
  Receipt Date: 20230427
  Transmission Date: 20230721
  Serious: No
  Sender: FDA-Public Use
  Company Number: US-GSK-US2023AMR058866

PATIENT

DRUGS (2)
  1. FLOVENT HFA [Suspect]
     Active Substance: FLUTICASONE PROPIONATE
     Indication: Asthma
     Dosage: UNK
  2. LEVALBUTEROL [Concomitant]
     Active Substance: LEVALBUTEROL
     Indication: Asthma
     Dosage: AS NECESSARY (PRN)

REACTIONS (7)
  - Fatigue [Recovered/Resolved]
  - Sinus congestion [Recovered/Resolved]
  - Viral infection [Unknown]
  - COVID-19 [Unknown]
  - Rhinorrhoea [Recovered/Resolved]
  - Incorrect dose administered [Unknown]
  - Product complaint [Unknown]

NARRATIVE: CASE EVENT DATE: 20230227
